FAERS Safety Report 19474609 (Version 1)
Quarter: 2021Q2

REPORT INFORMATION
  Report Type: Spontaneous
  Country: CN (occurrence: CN)
  Receive Date: 20210630
  Receipt Date: 20210630
  Transmission Date: 20210717
  Serious: Yes (Hospitalization)
  Sender: FDA-Public Use
  Company Number: CN-ASTRAZENECA-2021A564543

PATIENT

DRUGS (3)
  1. PREDNISONE ACETATE [Concomitant]
     Active Substance: PREDNISONE ACETATE
  2. TRIPTERYGIUM GLYCOSIDES [Concomitant]
  3. OLAPARIB. [Suspect]
     Active Substance: OLAPARIB
     Route: 048

REACTIONS (1)
  - Gastrointestinal disorder [Unknown]
